FAERS Safety Report 5883686-4 (Version None)
Quarter: 2008Q3

REPORT INFORMATION
  Report Type: 
  Country: None (occurrence: None)
  Receive Date: 20080912
  Receipt Date: 20080912
  Transmission Date: 20090109
  Serious: No
  Sender: FDA-Public Use
  Company Number: None

PATIENT
  Age: 40 Year
  Sex: Female
  Weight: 59.8748 kg

DRUGS (2)
  1. METOPROLOL SUCCINATE [Suspect]
     Indication: HYPERTENSION
     Dosage: 1 PILL 1X A DAY PO
     Route: 048
     Dates: start: 20080810, end: 20080910
  2. METOPROLOL SUCCINATE [Suspect]
     Indication: TACHYCARDIA
     Dosage: 1 PILL 1X A DAY PO
     Route: 048
     Dates: start: 20080810, end: 20080910

REACTIONS (3)
  - BLOOD PRESSURE INCREASED [None]
  - HEART RATE INCREASED [None]
  - THERAPEUTIC RESPONSE UNEXPECTED WITH DRUG SUBSTITUTION [None]
